FAERS Safety Report 7690910-4 (Version None)
Quarter: 2011Q3

REPORT INFORMATION
  Report Type: 
  Country: None (occurrence: None)
  Receive Date: 20110812
  Receipt Date: 20110729
  Transmission Date: 20111222
  Serious: Yes (Other)
  Sender: FDA-Public Use
  Company Number: MC201100352

PATIENT
  Age: 48 Year
  Sex: Male

DRUGS (9)
  1. ASPEGIC (ACETYLSALICYLATE LYSINE) [Concomitant]
  2. LOVENOX [Concomitant]
  3. CRESTOR [Concomitant]
  4. ISOSORBIDE DINITRATE [Concomitant]
  5. NICOPATCH (NICOTINE) [Concomitant]
  6. ATENOLOL [Concomitant]
  7. PLAVIX [Concomitant]
  8. ANGIOMAX [Suspect]
     Indication: CORONARY ANGIOPLASTY
     Dosage: 1 MG/KG, BOLUS, INTRAVENOUS, 0.25 MG/KG, HR, INTRAVENOUS
     Route: 040
     Dates: start: 20090911, end: 20090912
  9. ANGIOMAX [Suspect]
     Indication: CORONARY ANGIOPLASTY
     Dosage: 1 MG/KG, BOLUS, INTRAVENOUS, 0.25 MG/KG, HR, INTRAVENOUS
     Route: 040
     Dates: start: 20090911, end: 20090911

REACTIONS (2)
  - COAGULATION FACTOR V LEVEL DECREASED [None]
  - PROTHROMBIN LEVEL DECREASED [None]
